FAERS Safety Report 6200826-8 (Version None)
Quarter: 2009Q2

REPORT INFORMATION
  Report Type: 
  Country: None (occurrence: None)
  Receive Date: 20090522
  Receipt Date: 20080919
  Transmission Date: 20091009
  Serious: No
  Sender: FDA-Public Use
  Company Number: US-ALEXION-A200800227

PATIENT
  Sex: Female

DRUGS (2)
  1. SOLIRIS [Suspect]
  2. COUMADIN [Suspect]
     Dosage: 7.5 MG, QD

REACTIONS (2)
  - COAGULOPATHY [None]
  - PALPITATIONS [None]
